FAERS Safety Report 11206278 (Version 4)
Quarter: 2019Q1

REPORT INFORMATION
  Report Type: Report from Study
  Country: US (occurrence: US)
  Receive Date: 20150622
  Receipt Date: 20190128
  Transmission Date: 20190417
  Serious: Yes (Other)
  Sender: FDA-Public Use
  Company Number: US-SA-2014SA009378

PATIENT
  Age: 58 Year
  Sex: Female

DRUGS (11)
  1. TERIFLUNOMIDE. [Suspect]
     Active Substance: TERIFLUNOMIDE
     Dosage: 14 MG,QD
     Route: 048
     Dates: start: 20140116
  2. NAPROXEN. [Concomitant]
     Active Substance: NAPROXEN
     Dosage: 500 MG,BID
  3. ARICEPT [Concomitant]
     Active Substance: DONEPEZIL HYDROCHLORIDE
     Dosage: 10 MG,QD
  4. VITAMIN D3 [Concomitant]
     Active Substance: CHOLECALCIFEROL
     Dosage: 5000 MG,QD
  5. CLONAZEPAM. [Concomitant]
     Active Substance: CLONAZEPAM
     Dosage: UNK
  6. FISH OIL [Concomitant]
     Active Substance: FISH OIL
     Dosage: 2000 MG,QD
  7. FIRMAGON [Concomitant]
     Active Substance: DEGARELIX ACETATE
     Dosage: DROPS TAKEN NIGHTLY
  8. TERIFLUNOMIDE. [Suspect]
     Active Substance: TERIFLUNOMIDE
     Indication: MULTIPLE SCLEROSIS
     Dosage: 14 MG,QD
     Route: 048
     Dates: start: 20130103
  9. PROZAC [Concomitant]
     Active Substance: FLUOXETINE HYDROCHLORIDE
     Dosage: 20 MG,QD
  10. TOCOPHEROL [Concomitant]
     Active Substance: TOCOPHEROL
     Dosage: 1000 MG,BID
  11. LIDODERM [Concomitant]
     Active Substance: LIDOCAINE
     Dosage: UNK UNK,QD

REACTIONS (27)
  - Stress [Not Recovered/Not Resolved]
  - Emotional distress [Not Recovered/Not Resolved]
  - Skin reaction [Unknown]
  - Eye swelling [Unknown]
  - Swelling face [Unknown]
  - Sunburn [Unknown]
  - Immune system disorder [Unknown]
  - Muscle spasticity [Unknown]
  - Weight decreased [Unknown]
  - Product dose omission [Not Recovered/Not Resolved]
  - Urinary tract infection [Unknown]
  - Hip arthroplasty [Unknown]
  - Flatulence [Not Recovered/Not Resolved]
  - Psoriasis [Unknown]
  - Eczema [Unknown]
  - Alopecia [Unknown]
  - Multiple sclerosis relapse [Not Recovered/Not Resolved]
  - Decreased appetite [Unknown]
  - Gastrointestinal motility disorder [Unknown]
  - Irritability [Not Recovered/Not Resolved]
  - Peripheral swelling [Not Recovered/Not Resolved]
  - Hypoaesthesia [Not Recovered/Not Resolved]
  - Diarrhoea [Not Recovered/Not Resolved]
  - Fatigue [Not Recovered/Not Resolved]
  - Therapeutic response unexpected [Unknown]
  - Pruritus [Unknown]
  - Visual impairment [Unknown]

NARRATIVE: CASE EVENT DATE: 201401
